FAERS Safety Report 22699503 (Version 4)
Quarter: 2023Q4

REPORT INFORMATION
  Report Type: Report from Study
  Country: US (occurrence: US)
  Receive Date: 20230713
  Receipt Date: 20231017
  Transmission Date: 20240110
  Serious: No
  Sender: FDA-Public Use
  Company Number: US-002147023-NVSC2023US154699

PATIENT
  Sex: Female

DRUGS (1)
  1. ENTRESTO [Suspect]
     Active Substance: SACUBITRIL\VALSARTAN
     Indication: Product used for unknown indication
     Dosage: 1 DOSAGE FORM, BID(24/26 MG)
     Route: 065

REACTIONS (12)
  - Speech disorder [Unknown]
  - Suffocation feeling [Unknown]
  - Poor quality sleep [Unknown]
  - Respiratory tract congestion [Unknown]
  - Chest pain [Unknown]
  - Dry throat [Unknown]
  - Temperature intolerance [Unknown]
  - Fear [Unknown]
  - Illness [Unknown]
  - Fatigue [Unknown]
  - Cough [Unknown]
  - Memory impairment [Unknown]
